FAERS Safety Report 6314998-8 (Version None)
Quarter: 2009Q3

REPORT INFORMATION
  Report Type: 
  Country: None (occurrence: None)
  Receive Date: 20090819
  Receipt Date: 20090813
  Transmission Date: 20100115
  Serious: Yes (Congenital Anomaly, Other)
  Sender: FDA-Public Use
  Company Number: B0589241A

PATIENT
  Sex: Female
  Weight: 3 kg

DRUGS (5)
  1. DEROXAT [Suspect]
     Indication: AFFECTIVE DISORDER
     Dosage: 80MG PER DAY
     Dates: start: 20080610, end: 20080617
  2. PRAVASTATIN SODIUM [Suspect]
     Indication: DRUG USE FOR UNKNOWN INDICATION
     Dosage: 20MG PER DAY
     Dates: start: 20080601, end: 20080601
  3. XANAX [Suspect]
     Indication: ANXIETY DISORDER
     Dosage: .25MG THREE TIMES PER DAY
     Dates: start: 20080603, end: 20080707
  4. TEMESTA [Suspect]
     Indication: ANXIETY DISORDER
     Dosage: 2.5MG THREE TIMES PER DAY
     Dates: start: 20080701, end: 20080707
  5. ZOLOFT [Suspect]
     Indication: AFFECTIVE DISORDER
     Dosage: 50MG PER DAY
     Dates: start: 20080603, end: 20080705

REACTIONS (2)
  - DRUG EXPOSURE DURING PREGNANCY [None]
  - HAEMANGIOMA CONGENITAL [None]
